FAERS Safety Report 9485302 (Version 1)
Quarter: 2013Q3

REPORT INFORMATION
  Report Type: Report from Study
  Country: ZA (occurrence: ZA)
  Receive Date: 20130828
  Receipt Date: 20130828
  Transmission Date: 20140515
  Serious: Yes (Death)
  Sender: FDA-Public Use
  Company Number: ZA-GILEAD-2013-0082031

PATIENT
  Sex: 0

DRUGS (3)
  1. TENOFOVIR DISOPROXIL FUMARATE [Suspect]
     Indication: HIV INFECTION
     Route: 064
  2. LAMIVUDINE [Suspect]
     Indication: HIV INFECTION
     Route: 064
  3. NEVIRAPINE [Suspect]
     Indication: HIV INFECTION
     Route: 064

REACTIONS (1)
  - Death neonatal [Fatal]
